FAERS Safety Report 14486387 (Version 1)
Quarter: 2018Q1

REPORT INFORMATION
  Report Type: Spontaneous
  Country: US (occurrence: US)
  Receive Date: 20180203
  Receipt Date: 20180203
  Transmission Date: 20180509
  Serious: No
  Sender: FDA-Public Use
  Company Number: None

PATIENT
  Age: 35 Year
  Sex: Male
  Weight: 90 kg

DRUGS (4)
  1. HUMALOG [Concomitant]
     Active Substance: INSULIN LISPRO
  2. BUPROPION. [Concomitant]
     Active Substance: BUPROPION
  3. DULOXETINE DELAYED-RELEASE CAPSULES USP [Suspect]
     Active Substance: DULOXETINE
     Indication: DEPRESSION
     Dosage: ?          QUANTITY:1 CAPSULE(S);?
     Route: 048
     Dates: start: 20170609, end: 20180126
  4. ATORVASTATIN [Concomitant]
     Active Substance: ATORVASTATIN

REACTIONS (18)
  - Nausea [None]
  - Feeling abnormal [None]
  - Disorientation [None]
  - Tinnitus [None]
  - Disturbance in attention [None]
  - Anxiety [None]
  - Frustration tolerance decreased [None]
  - Fatigue [None]
  - Ocular discomfort [None]
  - Mood swings [None]
  - Eye pain [None]
  - Paraesthesia [None]
  - Feeling of despair [None]
  - Somnolence [None]
  - Withdrawal syndrome [None]
  - Dizziness [None]
  - Eye disorder [None]
  - Suicidal ideation [None]

NARRATIVE: CASE EVENT DATE: 20180126
